FAERS Safety Report 6197686-0 (Version None)
Quarter: 2009Q2

REPORT INFORMATION
  Report Type: 
  Country: None (occurrence: None)
  Receive Date: 20090514
  Receipt Date: 20090224
  Transmission Date: 20091009
  Serious: Yes (Life-Threatening)
  Sender: FDA-Public Use
  Company Number: AE-209-073

PATIENT
  Age: 47 Year
  Sex: Female

DRUGS (2)
  1. LIDODERM [Suspect]
     Indication: BACK PAIN
     Dosage: 3 PATCHES A DAY
  2. FENTANYL [Suspect]

REACTIONS (1)
  - CARDIAC ARREST [None]
